FAERS Safety Report 26179034 (Version 1)
Quarter: 2025Q4

REPORT INFORMATION
  Report Type: Spontaneous
  Country: GB (occurrence: GB)
  Receive Date: 20251219
  Receipt Date: 20251219
  Transmission Date: 20260117
  Serious: Yes (Life-Threatening, Hospitalization, Other)
  Sender: RANBAXY
  Company Number: GB-MHRA-MIDB-934b212b-7867-4972-9e0a-a34ede4c21e2

PATIENT
  Age: 76 Year
  Sex: Female

DRUGS (24)
  1. WARFARIN [Suspect]
     Active Substance: WARFARIN
     Indication: Product used for unknown indication
     Dosage: 3 MILLIGRAM, DAILY, WARFARIN 3MG DAILY (NEWLY STARTED)
     Route: 065
  2. ALENDRONIC ACID [Concomitant]
     Active Substance: ALENDRONIC ACID
     Indication: Product used for unknown indication
     Dosage: ONE TO BE TAKEN ON THE SAME DAY EACH WEEK Y ON WEDNESDAYS
     Route: 065
  3. CAFFEINE [Concomitant]
     Active Substance: CAFFEINE
     Indication: Product used for unknown indication
     Dosage: UNK
     Route: 065
  4. NITROGLYCERIN [Concomitant]
     Active Substance: NITROGLYCERIN
     Indication: Product used for unknown indication
     Dosage: / DOSE PUMP SUBLINGUAL SPRAY PRN Y
     Route: 065
  5. LEVOTHYROXINE [Concomitant]
     Active Substance: LEVOTHYROXINE
     Indication: Product used for unknown indication
     Dosage: LEVOTHYROXINE SODIUM 100 MICROGRAM TABLETS ONE TO BE TAKEN EACH MORNING AT LEAST 30MINUTES BEFORE BR
     Route: 065
  6. PARAFFIN [Concomitant]
     Active Substance: PARAFFIN
     Indication: Product used for unknown indication
     Dosage: - NOT NEEDED AS IP
     Route: 065
  7. 3M CAVILON ANTIFUNGAL [Concomitant]
     Active Substance: MICONAZOLE NITRATE
     Indication: Product used for unknown indication
     Dosage: 1 APPLICATION QDS PRN
     Route: 065
  8. SODIUM HYALURONATE [Concomitant]
     Active Substance: HYALURONATE SODIUM
     Indication: Product used for unknown indication
     Dosage: 1 DROP EVERY 3 HOURS PRN DRY EYES
     Route: 065
  9. OXYCODONE [Concomitant]
     Active Substance: OXYCODONE
     Indication: Product used for unknown indication
     Dosage: 2.5 MILLIGRAM, 2.5MG EVERY 4 HOURS PRN.
     Route: 065
  10. Hydromol [Concomitant]
     Indication: Product used for unknown indication
     Dosage: USE FOUR TIMES A DAY TO AFFECTED AREAS Y
     Route: 065
  11. BISOPROLOL [Concomitant]
     Active Substance: BISOPROLOL
     Indication: Product used for unknown indication
     Dosage: 2.5 MILLIGRAM, BISOPROLOL 2.5 MG TABLETS ONE TO BE TAKEN EACH DAY AS PER CARDIOLOGY Y -
     Route: 065
  12. CHOLECALCIFEROL [Concomitant]
     Active Substance: CHOLECALCIFEROL
     Indication: Product used for unknown indication
     Dosage: ONE TO BE TAKEN ONCE DAILY Y OM
     Route: 065
  13. BUDESONIDE [Concomitant]
     Active Substance: BUDESONIDE
     Indication: Product used for unknown indication
     Dosage: 2 ONCE DAILY WHEN REQUIRED N
     Route: 065
  14. ACETAMINOPHEN [Concomitant]
     Active Substance: ACETAMINOPHEN
     Indication: Product used for unknown indication
     Dosage: PARACETAMOL 500 MG TABLETS TAKE TWO TABLETS EVERY FOUR TO SIX HOURS WHEN REQUIRED. MAXIMUM8 TABLETS
     Route: 065
  15. GLICLAZIDE [Concomitant]
     Active Substance: GLICLAZIDE
     Indication: Product used for unknown indication
     Dosage: GLICLAZIDE 80 MG TABLETS TAKE ONE TABLET ONCE A DAY WITH BREAKFAST YGLICLAZIDE 40 MG TABLETS ONE NOC
     Route: 065
  16. TETRABENAZINE [Concomitant]
     Active Substance: TETRABENAZINE
     Indication: Product used for unknown indication
     Dosage: 12.5MG BD IN MORNING AND TEATIME FOR 7 DAYS
     Route: 065
  17. CARBOMER [Concomitant]
     Active Substance: CARBOMER
     Indication: Product used for unknown indication
     Dosage: 1 DROP EVERY 4 HOURS (6 TIMES A DAY)
     Route: 065
  18. FERROUS FUMARATE [Concomitant]
     Active Substance: FERROUS FUMARATE
     Indication: Product used for unknown indication
     Dosage: TAKE ONE TABLET ONCE A DAY Y LUNCHTIME
     Route: 065
  19. CANDESARTAN [Concomitant]
     Active Substance: CANDESARTAN
     Indication: Product used for unknown indication
     Dosage: CANDESARTAN 8 MG TABLETS ONE TO BE TAKEN EACH DAY Y OM -CANDESARTAN 4MG TABLETS, 4MG EVERY EVENING A
     Route: 065
  20. LANSOPRAZOLE [Concomitant]
     Active Substance: LANSOPRAZOLE
     Indication: Product used for unknown indication
     Dosage: LANSOPRAZOLE 30 MG GASTRO-RESISTANT CAPSULES ONE TO BE TAKEN EACH MORNING Y
     Route: 065
  21. ROSUVASTATIN [Concomitant]
     Active Substance: ROSUVASTATIN
     Indication: Product used for unknown indication
     Dosage: ROSUVASTATIN 5 MG TABLETS ONE TO BE TAKEN THREE TIMES PER WEEK (TUESDAY, THURSDAY, SUNDAY) Y ON
     Route: 065
  22. LINAGLIPTIN [Concomitant]
     Active Substance: LINAGLIPTIN
     Indication: Product used for unknown indication
     Dosage: LINAGLIPTIN 5 MG TABLETS ONE TO BE TAKEN EACH DAY Y
     Route: 065
  23. AMLODIPINE [Concomitant]
     Active Substance: AMLODIPINE BESYLATE
     Indication: Product used for unknown indication
     Dosage: AMLODIPINE 10 MG TABLETS ONE TO BE TAKEN DAILY Y - HELD AS BP STILL LOW
     Route: 065
  24. PREDNISOLONE [Concomitant]
     Active Substance: PREDNISOLONE
     Indication: Product used for unknown indication
     Dosage: PREDNISOLONE 5 MG TABLETS AS DIRECTED BY HOSPITAL CONSULTANT Y
     Route: 065

REACTIONS (1)
  - Haemorrhage [Recovered/Resolved]
